FAERS Safety Report 7028906-8 (Version None)
Quarter: 2010Q4

REPORT INFORMATION
  Report Type: 
  Country: None (occurrence: None)
  Receive Date: 20101005
  Receipt Date: 20100923
  Transmission Date: 20110411
  Serious: No
  Sender: FDA-Public Use
  Company Number: US-PFIZER INC-2010121793

PATIENT
  Age: 25 Year
  Sex: Female

DRUGS (5)
  1. GEODON [Suspect]
     Indication: SCHIZOID PERSONALITY DISORDER
     Dosage: UNK
     Route: 048
  2. GEODON [Suspect]
     Dosage: 320 MG, UNK
  3. LORAZEPAM [Concomitant]
     Dosage: 1 MG, 2X/DAY
     Route: 048
  4. ZOLOFT [Concomitant]
     Dosage: UNK
     Route: 048
  5. AMANTADINE [Concomitant]
     Dosage: 100 MG, 2X/DAY
     Route: 048

REACTIONS (1)
  - GALACTORRHOEA [None]
